FAERS Safety Report 9645004 (Version 1)
Quarter: 2013Q4

REPORT INFORMATION
  Report Type: Spontaneous
  Country: US (occurrence: None)
  Receive Date: 20131023
  Receipt Date: 20131023
  Transmission Date: 20140711
  Serious: Yes (Other)
  Sender: FDA-Public Use
  Company Number: None

PATIENT
  Age: 36 Year
  Sex: Female
  Weight: 60 kg

DRUGS (3)
  1. TRAMADOL [Suspect]
     Dosage: TRAMADOL 50MG, 206^PRN, ORAL
     Route: 048
  2. GABAPENTIN [Concomitant]
  3. LAMICTAL [Concomitant]

REACTIONS (2)
  - Somnolence [None]
  - Impaired work ability [None]
